FAERS Safety Report 12474369 (Version 1)
Quarter: 2016Q2

REPORT INFORMATION
  Report Type: Spontaneous
  Country: US (occurrence: None)
  Receive Date: 20160616
  Receipt Date: 20160616
  Transmission Date: 20160815
  Serious: No
  Sender: FDA-Public Use
  Company Number: None

PATIENT
  Age: 66 Year
  Sex: Female

DRUGS (1)
  1. AMPYRA [Suspect]
     Active Substance: DALFAMPRIDINE
     Indication: MULTIPLE SCLEROSIS
     Route: 048
     Dates: start: 20130108

REACTIONS (3)
  - Blood immunoglobulin G increased [None]
  - T-lymphocyte count increased [None]
  - CD4 lymphocytes increased [None]

NARRATIVE: CASE EVENT DATE: 20160523
